FAERS Safety Report 4941562-5 (Version None)
Quarter: 2006Q1

REPORT INFORMATION
  Report Type: 
  Country: None (occurrence: None)
  Receive Date: 20060308
  Receipt Date: 20060220
  Transmission Date: 20060701
  Serious: Yes (Other)
  Sender: FDA-Public Use
  Company Number: 2006EU000508

PATIENT
  Age: 60 Year
  Sex: Male

DRUGS (6)
  1. PROGRAF [Suspect]
     Indication: HEART TRANSPLANT
  2. MYCOPHENOLATE MOFETIL (MYCOPHENOLATE MOFETIL) [Suspect]
     Indication: HEART TRANSPLANT
  3. DACLIZUMAB (DACLIZUMAB) [Suspect]
     Indication: HEART TRANSPLANT
  4. GANCICLOVIR (GANCICLOVIR) [Concomitant]
  5. NISTATIN (NYSTATIN) [Concomitant]
  6. SULFAMETHOXAZOLE + TRIMETHOPRIM [Concomitant]

REACTIONS (3)
  - CYTOMEGALOVIRUS INFECTION [None]
  - HYPOGAMMAGLOBULINAEMIA [None]
  - MENINGITIS PNEUMOCOCCAL [None]
